FAERS Safety Report 6313192-4 (Version None)
Quarter: 2009Q3

REPORT INFORMATION
  Report Type: 
  Country: None (occurrence: None)
  Receive Date: 20090814
  Receipt Date: 20090731
  Transmission Date: 20100115
  Serious: Yes (Hospitalization)
  Sender: FDA-Public Use
  Company Number: MPS1-1000204

PATIENT
  Age: 6 Year
  Sex: Male
  Weight: 17 kg

DRUGS (2)
  1. ALDURAZYME [Suspect]
     Indication: MUCOPOLYSACCHARIDOSIS IH
     Dosage: INTRAVENOUS
     Route: 042
     Dates: start: 20050510
  2. NICARDIPINE HCL [Concomitant]

REACTIONS (11)
  - CEREBRAL VENTRICLE DILATATION [None]
  - DEAFNESS [None]
  - DISEASE PROGRESSION [None]
  - DRUG INEFFECTIVE [None]
  - GROWTH RETARDATION [None]
  - HYPERCAPNIA [None]
  - LEFT VENTRICULAR HYPERTROPHY [None]
  - MALAISE [None]
  - PULMONARY ARTERIAL HYPERTENSION [None]
  - RESPIRATORY DISTRESS [None]
  - SLEEP APNOEA SYNDROME [None]
